FAERS Safety Report 9068288 (Version 2)
Quarter: 2013Q2

REPORT INFORMATION
  Report Type: Report from Study
  Country: JP (occurrence: JP)
  Receive Date: 20130206
  Receipt Date: 20130501
  Transmission Date: 20140414
  Serious: Yes (Hospitalization)
  Sender: FDA-Public Use
  Company Number: JP-PFIZER INC-2013041160

PATIENT
  Age: 49 Year
  Sex: Female
  Weight: 52.3 kg

DRUGS (7)
  1. XALKORI [Suspect]
     Indication: NON-SMALL CELL LUNG CANCER
     Dosage: 250 MG, 2X/DAY
     Route: 048
     Dates: start: 20120508, end: 20120606
  2. RINDERON [Suspect]
     Indication: METASTASES TO CENTRAL NERVOUS SYSTEM
     Dosage: 0.5 MG, 2X/DAY
     Route: 048
     Dates: end: 20120606
  3. TAKEPRON OD [Concomitant]
     Dosage: 15 MG, 1X/DAY
     Route: 048
  4. MERISLON [Concomitant]
     Dosage: 6 MG, 3X/DAY
     Route: 048
     Dates: end: 20120614
  5. DEPAS [Concomitant]
     Dosage: 0.5 MG, AS NEEDED
     Route: 048
  6. LOXONIN [Concomitant]
     Dosage: 60 MG, AS NEEDED
     Route: 048
  7. TRAVELMIN [Concomitant]
     Dosage: 1 DF, AS NEEDED
     Route: 048

REACTIONS (1)
  - Pneumocystis jirovecii pneumonia [Recovering/Resolving]
